FAERS Safety Report 14811864 (Version 1)
Quarter: 2018Q2

REPORT INFORMATION
  Report Type: Spontaneous
  Country: US (occurrence: US)
  Receive Date: 20180425
  Receipt Date: 20180425
  Transmission Date: 20180711
  Serious: Yes (Other)
  Sender: FDA-Public Use
  Company Number: US-AMGEN-USASP2018005947

PATIENT
  Age: 78 Year
  Sex: Male
  Weight: 96.15 kg

DRUGS (2)
  1. REPATHA [Suspect]
     Active Substance: EVOLOCUMAB
     Indication: HYPERLIPIDAEMIA
     Dosage: 140 MG,
     Route: 065
     Dates: start: 20180112, end: 20180112
  2. REPATHA [Suspect]
     Active Substance: EVOLOCUMAB
     Dosage: 150 MG, Q2WK
     Route: 065

REACTIONS (3)
  - Urticaria [Recovering/Resolving]
  - Swelling [Unknown]
  - Off label use [Unknown]

NARRATIVE: CASE EVENT DATE: 201801
